FAERS Safety Report 25713716 (Version 1)
Quarter: 2025Q3

REPORT INFORMATION
  Report Type: Spontaneous
  Country: TN (occurrence: TN)
  Receive Date: 20250822
  Receipt Date: 20250822
  Transmission Date: 20251020
  Serious: Yes (Other)
  Sender: ROCHE
  Company Number: TN-ROCHE-10000364024

PATIENT
  Sex: Male

DRUGS (1)
  1. VISMODEGIB [Suspect]
     Active Substance: VISMODEGIB
     Indication: Basal cell carcinoma
     Route: 065
     Dates: start: 202206

REACTIONS (4)
  - Dysgeusia [Unknown]
  - Muscle spasms [Unknown]
  - Treatment failure [Unknown]
  - Disease progression [Unknown]
